FAERS Safety Report 13408116 (Version 4)
Quarter: 2017Q2

REPORT INFORMATION
  Report Type: Spontaneous
  Country: CO (occurrence: CO)
  Receive Date: 20170406
  Receipt Date: 20170519
  Transmission Date: 20170830
  Serious: Yes (Hospitalization, Other)
  Sender: FDA-Public Use
  Company Number: CO-009507513-1704COL001837

PATIENT
  Age: 32 Year
  Sex: Male
  Weight: 74 kg

DRUGS (4)
  1. LAMIVUDINE AND ZIDOVUDINE [Concomitant]
     Active Substance: LAMIVUDINE\ZIDOVUDINE
     Dosage: 150/300 MG, Q12H
     Route: 065
     Dates: start: 20170222
  2. ISENTRESS [Suspect]
     Active Substance: RALTEGRAVIR POTASSIUM
     Indication: HIV INFECTION
     Dosage: 400 MG, Q12H
     Route: 048
     Dates: start: 20170124, end: 20170222
  3. ISENTRESS [Suspect]
     Active Substance: RALTEGRAVIR POTASSIUM
     Dosage: 400 MG, Q12H,(ROUTE: NASOGASTRIC)
     Dates: start: 20170222
  4. LAMIVUDINE AND ZIDOVUDINE [Concomitant]
     Active Substance: LAMIVUDINE\ZIDOVUDINE
     Indication: HIV INFECTION
     Dosage: 150/300 MG, Q12H
     Route: 065
     Dates: start: 20170124, end: 20170222

REACTIONS (9)
  - Incorrect route of drug administration [Unknown]
  - Brain hypoxia [Not Recovered/Not Resolved]
  - Wrong technique in product usage process [Unknown]
  - Decreased eye contact [Unknown]
  - Decubitus ulcer [Not Recovered/Not Resolved]
  - Sensorimotor disorder [Unknown]
  - Nausea [Not Recovered/Not Resolved]
  - Fatigue [Not Recovered/Not Resolved]
  - Suicide attempt [Unknown]

NARRATIVE: CASE EVENT DATE: 2017
